FAERS Safety Report 20441728 (Version 1)
Quarter: 2022Q1

REPORT INFORMATION
  Report Type: Report from Study
  Country: FR (occurrence: FR)
  Receive Date: 20220208
  Receipt Date: 20220208
  Transmission Date: 20220424
  Serious: Yes (Disabling)
  Sender: FDA-Public Use
  Company Number: FR-SERVIER-S22001034

PATIENT

DRUGS (14)
  1. PEGASPARGASE [Suspect]
     Active Substance: PEGASPARGASE
     Indication: Acute lymphocytic leukaemia
     Dosage: 3250 IU, D4, D43
     Route: 042
     Dates: start: 20211112
  2. DEXAMETHASONE [Suspect]
     Active Substance: DEXAMETHASONE
     Indication: Acute lymphocytic leukaemia
     Dosage: 12 MG, D1 TO D7, D15 TO D21
     Route: 048
     Dates: start: 20211109, end: 20211122
  3. DOXORUBICIN HYDROCHLORIDE [Suspect]
     Active Substance: DOXORUBICIN HYDROCHLORIDE
     Indication: Acute lymphocytic leukaemia
     Dosage: 32.5 MG, D1, D8, D15
     Route: 042
     Dates: start: 20211109, end: 20211123
  4. VINCRISTINE SULFATE [Suspect]
     Active Substance: VINCRISTINE SULFATE
     Indication: Acute lymphocytic leukaemia
     Dosage: 1.9 MG, D1, D8, D15, D43, D50
     Route: 042
     Dates: start: 20211109
  5. METHOTREXATE [Suspect]
     Active Substance: METHOTREXATE
     Indication: Acute lymphocytic leukaemia
     Dosage: 12 MG, D4, D31
     Route: 037
     Dates: start: 20211112, end: 20211213
  6. CYTARABINE [Suspect]
     Active Substance: CYTARABINE
     Indication: Acute lymphocytic leukaemia
     Dosage: 30 MG, D4, D31
     Route: 037
     Dates: start: 20211112, end: 20211213
  7. CYTARABINE [Suspect]
     Active Substance: CYTARABINE
     Dosage: 101 MG, D31  TO D34, D38 TO D41
     Route: 042
     Dates: start: 20211213
  8. HYDROCORTISONE [Suspect]
     Active Substance: HYDROCORTISONE
     Indication: Acute lymphocytic leukaemia
     Dosage: 15 MG, D4, D31
     Route: 037
     Dates: start: 20211112, end: 20211213
  9. CYCLOPHOSPHAMIDE [Suspect]
     Active Substance: CYCLOPHOSPHAMIDE
     Indication: Acute lymphocytic leukaemia
     Dosage: 1350 MG, D29
     Route: 042
     Dates: start: 20211210, end: 20211210
  10. MERCAPTOPURINE [Suspect]
     Active Substance: MERCAPTOPURINE
     Indication: Acute lymphocytic leukaemia
     Dosage: 81 MG, D29 TO D42
     Route: 048
     Dates: start: 20211210
  11. TN UNSPECIFIED [Concomitant]
     Indication: Product used for unknown indication
     Dosage: UNK
     Route: 065
  12. TN UNSPECIFIED [Concomitant]
     Indication: Product used for unknown indication
     Dosage: UNK
     Route: 065
  13. TN UNSPECIFIED [Concomitant]
     Indication: Product used for unknown indication
     Dosage: UNK
     Route: 065
  14. TN UNSPECIFIED [Concomitant]
     Indication: Product used for unknown indication
     Dosage: UNK
     Route: 065

REACTIONS (1)
  - Osteochondritis [Not Recovered/Not Resolved]

NARRATIVE: CASE EVENT DATE: 20211213
